FAERS Safety Report 8352043-3 (Version None)
Quarter: 2012Q2

REPORT INFORMATION
  Report Type: 
  Country: None (occurrence: None)
  Receive Date: 20120509
  Receipt Date: 20120509
  Transmission Date: 20120825
  Serious: Yes (Other)
  Sender: FDA-Public Use
  Company Number: None

PATIENT
  Age: 41 Year
  Sex: Female
  Weight: 113.3993 kg

DRUGS (1)
  1. MIRENA [Suspect]
     Dates: start: 20110628, end: 20120103

REACTIONS (1)
  - HAEMORRHAGE [None]
